FAERS Safety Report 7371484-4 (Version None)
Quarter: 2011Q1

REPORT INFORMATION
  Report Type: 
  Country: None (occurrence: None)
  Receive Date: 20110324
  Receipt Date: 20110321
  Transmission Date: 20110831
  Serious: Yes (Congenital Anomaly, Other)
  Sender: FDA-Public Use
  Company Number: US-PFIZER INC-2011063917

PATIENT
  Sex: Male

DRUGS (1)
  1. XANAX [Suspect]
     Route: 064

REACTIONS (5)
  - HEART DISEASE CONGENITAL [None]
  - CONGENITAL AORTIC STENOSIS [None]
  - ENDOCARDIAL FIBROELASTOSIS [None]
  - MATERNAL DRUGS AFFECTING FOETUS [None]
  - DRUG EXPOSURE DURING PREGNANCY [None]
